FAERS Safety Report 5507093-9 (Version None)
Quarter: 2007Q4

REPORT INFORMATION
  Report Type: 
  Country: None (occurrence: None)
  Receive Date: 20071105
  Receipt Date: 20071030
  Transmission Date: 20080405
  Serious: Yes (Hospitalization, Disabling)
  Sender: FDA-Public Use
  Company Number: FR-MERCK-0705FRA00023

PATIENT
  Age: 74 Year
  Sex: Male

DRUGS (4)
  1. SINGULAIR [Suspect]
     Indication: ASTHMA
     Route: 048
     Dates: start: 20051116, end: 20060415
  2. POLIDOCANOL [Suspect]
     Indication: VARICOSE VEIN
     Route: 042
     Dates: start: 20060403, end: 20060403
  3. FLUTICASONE PROPIONATE AND SALMETEROL XINAFOATE [Suspect]
     Indication: ASTHMA
  4. LEVOCETIRIZINE HYDROCHLORIDE [Suspect]
     Indication: RHINITIS ALLERGIC
     Route: 048

REACTIONS (1)
  - ALLERGIC GRANULOMATOUS ANGIITIS [None]
